FAERS Safety Report 7438414-8 (Version None)
Quarter: 2011Q2

REPORT INFORMATION
  Report Type: 
  Country: None (occurrence: None)
  Receive Date: 20110426
  Receipt Date: 20110418
  Transmission Date: 20111010
  Serious: Yes (Hospitalization, Other)
  Sender: FDA-Public Use
  Company Number: US-BAYER-201014268NA

PATIENT
  Age: 20 Year
  Sex: Female
  Weight: 59 kg

DRUGS (10)
  1. FLUOXETINE [Concomitant]
     Route: 065
  2. CLONAZEPAM [Concomitant]
     Route: 065
  3. TRAZODONE HCL [Concomitant]
     Route: 065
  4. DOXYCYCLIN [Concomitant]
     Route: 065
     Dates: start: 20070626, end: 20070704
  5. NAPROXEN (ALEVE) [Concomitant]
     Route: 065
     Dates: start: 20000101
  6. RISPERDAL [Concomitant]
     Route: 065
  7. LITHIUM [Concomitant]
     Route: 065
  8. YAZ [Suspect]
     Indication: CONTRACEPTION
     Dosage: DISCREPANCIES IN THE PFS ABOUTTHE START DATE: 05-NOV-2006 ON PG 25 AND 05-NOV-2007 ON PAGE 18
     Route: 048
     Dates: end: 20080801
  9. DOXYCYCLIN [Concomitant]
     Route: 065
     Dates: start: 20070626, end: 20070704
  10. DOXYCYCLIN [Concomitant]
     Route: 065
     Dates: start: 20070127, end: 20070205

REACTIONS (7)
  - CHOLECYSTITIS CHRONIC [None]
  - CHOLELITHIASIS [None]
  - ABDOMINAL PAIN UPPER [None]
  - NAUSEA [None]
  - VOMITING [None]
  - PANCREATITIS [None]
  - GALLBLADDER CHOLESTEROLOSIS [None]
